FAERS Safety Report 4729878-9 (Version None)
Quarter: 2005Q3

REPORT INFORMATION
  Report Type: 
  Country: None (occurrence: None)
  Receive Date: 20050728
  Receipt Date: 20050715
  Transmission Date: 20060218
  Serious: Yes (Other)
  Sender: FDA-Public Use
  Company Number: 200512901BCC

PATIENT
  Age: 64 Year
  Sex: Male
  Weight: 70.3075 kg

DRUGS (9)
  1. ALEVE [Suspect]
     Indication: BACK PAIN
     Dosage: 440 MG TOTAL DAILY ORAL
     Route: 048
     Dates: start: 20050714
  2. CIPROFLOXACIN [Suspect]
     Dates: start: 20050714
  3. FLUDROCORTISONE [Concomitant]
  4. FLOMAX [Concomitant]
  5. LIPITOR [Concomitant]
  6. BUMEX [Concomitant]
  7. PROSCAR [Concomitant]
  8. DIPYRIDAMOLE [Concomitant]
  9. SYNTHROID [Concomitant]

REACTIONS (1)
  - HAEMOPTYSIS [None]
